FAERS Safety Report 23284574 (Version 1)
Quarter: 2023Q4

REPORT INFORMATION
  Report Type: Spontaneous
  Country: CA (occurrence: CA)
  Receive Date: 20231211
  Receipt Date: 20231211
  Transmission Date: 20240110
  Serious: Yes (Other)
  Sender: FDA-Public Use
  Company Number: CA-PFIZER INC-202300332521

PATIENT
  Age: 43 Year
  Sex: Female

DRUGS (3)
  1. RUXIENCE [Suspect]
     Active Substance: RITUXIMAB-PVVR
     Indication: Central nervous system vasculitis
     Dosage: 1G X 2 DOSES, 15 DAYS APART
     Route: 042
     Dates: start: 20231115, end: 20231130
  2. RUXIENCE [Suspect]
     Active Substance: RITUXIMAB-PVVR
     Indication: Cerebrovascular accident
     Dosage: 1G X 2 DOSES, 15 DAYS APART (AFTER 2 WEEKS)
     Route: 042
     Dates: start: 20231130
  3. PREDNISONE [Concomitant]
     Active Substance: PREDNISONE
     Dosage: UNK

REACTIONS (3)
  - Central nervous system vasculitis [Unknown]
  - Condition aggravated [Unknown]
  - Off label use [Unknown]

NARRATIVE: CASE EVENT DATE: 20230101
